FAERS Safety Report 9424301 (Version 1)
Quarter: 2013Q3

REPORT INFORMATION
  Report Type: Spontaneous
  Country: ES (occurrence: ES)
  Receive Date: 20130729
  Receipt Date: 20130729
  Transmission Date: 20140515
  Serious: Yes (Hospitalization, Other)
  Sender: FDA-Public Use
  Company Number: ES-JNJFOC-20130711038

PATIENT
  Age: 41 Year
  Sex: Male
  Weight: 100 kg

DRUGS (6)
  1. STELARA [Suspect]
     Indication: PSORIASIS
     Route: 058
     Dates: start: 20130214
  2. AAS [Concomitant]
     Indication: PROPHYLAXIS
     Route: 065
  3. BISOPROLOL [Concomitant]
     Indication: PROPHYLAXIS
     Route: 065
  4. OMEGA 3 [Concomitant]
     Indication: HYPERTRIGLYCERIDAEMIA
     Route: 065
  5. FENOFIBRATE [Concomitant]
     Indication: HYPERTRIGLYCERIDAEMIA
     Route: 065
  6. PANTOPRAZOLE [Concomitant]
     Indication: PROPHYLAXIS
     Route: 065

REACTIONS (2)
  - Angina unstable [Recovered/Resolved]
  - Aortic stenosis [Recovering/Resolving]
